FAERS Safety Report 8315754-1 (Version None)
Quarter: 2012Q2

REPORT INFORMATION
  Report Type: 
  Country: None (occurrence: None)
  Receive Date: 20120426
  Receipt Date: 20120413
  Transmission Date: 20120825
  Serious: Yes (Other)
  Sender: FDA-Public Use
  Company Number: US-JNJFOC-20120407009

PATIENT
  Sex: Male

DRUGS (3)
  1. ACETAMINOPHEN [Suspect]
     Route: 048
  2. ACETAMINOPHEN [Suspect]
     Indication: PYREXIA
     Route: 048
  3. ALCOHOL [Suspect]
     Indication: PRODUCT USED FOR UNKNOWN INDICATION
     Route: 048

REACTIONS (1)
  - JAUNDICE [None]
